FAERS Safety Report 13839367 (Version 6)
Quarter: 2021Q2

REPORT INFORMATION
  Report Type: Report from Study
  Country: JP (occurrence: JP)
  Receive Date: 20170807
  Receipt Date: 20210609
  Transmission Date: 20210716
  Serious: Yes (Disabling, Other)
  Sender: FDA-Public Use
  Company Number: JP-ASTELLAS-2017JP014893AA

PATIENT
  Age: 76 Year
  Sex: Male

DRUGS (8)
  1. ENZALUTAMIDE [Suspect]
     Active Substance: ENZALUTAMIDE
     Indication: HORMONE-DEPENDENT PROSTATE CANCER
     Dosage: 160 MG, ONCE DAILY, IN THE MORNING
     Route: 048
     Dates: start: 20170530, end: 20170725
  2. FEBURIC [Concomitant]
     Active Substance: FEBUXOSTAT
     Indication: GOUT
     Route: 048
     Dates: start: 20170503, end: 20170725
  3. GONAX [Suspect]
     Active Substance: DEGARELIX
     Indication: HORMONE-REFRACTORY PROSTATE CANCER
     Route: 058
     Dates: start: 20170330, end: 20170330
  4. URIEF [Concomitant]
     Active Substance: SILODOSIN
     Indication: DYSURIA
     Route: 048
     Dates: start: 20170314, end: 20170725
  5. ENZALUTAMIDE [Suspect]
     Active Substance: ENZALUTAMIDE
     Dosage: 120 MG, ONCE DAILY, IN THE MORNING
     Route: 048
     Dates: start: 20170726, end: 20170727
  6. GONAX [Suspect]
     Active Substance: DEGARELIX
     Indication: HORMONE-REFRACTORY PROSTATE CANCER
     Route: 058
     Dates: start: 20170502, end: 20170725
  7. CRESTOR [Concomitant]
     Active Substance: ROSUVASTATIN CALCIUM
     Indication: HYPERLIPIDAEMIA
     Route: 048
     Dates: start: 20170503, end: 20170725
  8. ENZALUTAMIDE [Suspect]
     Active Substance: ENZALUTAMIDE
     Dosage: 80 MG, ONCE DAILY,  IN THE MORNING
     Route: 048
     Dates: start: 20170824

REACTIONS (1)
  - Hepatic function abnormal [Recovered/Resolved]

NARRATIVE: CASE EVENT DATE: 20170725
